FAERS Safety Report 12278817 (Version 2)
Quarter: 2016Q2

REPORT INFORMATION
  Report Type: Spontaneous
  Country: ES (occurrence: ES)
  Receive Date: 20160418
  Receipt Date: 20160420
  Transmission Date: 20160815
  Serious: Yes (Other)
  Sender: FDA-Public Use
  Company Number: ES-SA-2016SA074487

PATIENT
  Age: 62 Year
  Sex: Female

DRUGS (12)
  1. CARBOPLATIN. [Suspect]
     Active Substance: CARBOPLATIN
     Indication: NEUROENDOCRINE BREAST TUMOUR
     Dosage: EVERY 21 DAYS
     Route: 065
  2. TRASTUZUMAB [Suspect]
     Active Substance: TRASTUZUMAB
     Indication: NEUROENDOCRINE BREAST TUMOUR
     Dosage: EVERY 21 DAYS FOR A YEAR
     Route: 065
  3. TRASTUZUMAB [Suspect]
     Active Substance: TRASTUZUMAB
     Indication: NEUROENDOCRINE BREAST TUMOUR
     Dosage: EVERY 21 DAYS FOR A YEAR
     Route: 065
  4. DOCETAXEL. [Suspect]
     Active Substance: DOCETAXEL
     Indication: NEUROENDOCRINE BREAST TUMOUR
     Dosage: EVERY 21 DAYS
     Route: 065
  5. CARBOPLATIN. [Suspect]
     Active Substance: CARBOPLATIN
     Indication: NEUROENDOCRINE BREAST TUMOUR
     Dosage: EVERY 21 DAYS
     Route: 065
  6. GRANULOCYTE COLONY STIMULATING FACTOR [Concomitant]
     Active Substance: GRANULOCYTE COLONY-STIMULATING FACTOR NOS
  7. DOCETAXEL. [Suspect]
     Active Substance: DOCETAXEL
     Indication: NEUROENDOCRINE BREAST TUMOUR
     Dosage: EVERY 21 DAYS
     Route: 065
  8. LETROZOLE. [Suspect]
     Active Substance: LETROZOLE
     Indication: HORMONE THERAPY
     Route: 065
  9. CARBOPLATIN. [Suspect]
     Active Substance: CARBOPLATIN
     Indication: NEUROENDOCRINE BREAST TUMOUR
     Dosage: FIRST CYCLE: EVERY 21 DAYS
     Route: 065
  10. TRASTUZUMAB [Suspect]
     Active Substance: TRASTUZUMAB
     Indication: NEUROENDOCRINE BREAST TUMOUR
     Dosage: EVERY 21 DAYS
     Route: 065
  11. DOCETAXEL. [Suspect]
     Active Substance: DOCETAXEL
     Indication: NEUROENDOCRINE BREAST TUMOUR
     Dosage: EVERY 21 DAYS
     Route: 065
  12. TRASTUZUMAB [Suspect]
     Active Substance: TRASTUZUMAB
     Indication: NEUROENDOCRINE BREAST TUMOUR
     Dosage: FIRST CYCLE: EVERY 21 DAYS
     Route: 065

REACTIONS (2)
  - Diarrhoea [Unknown]
  - Ventricular hypokinesia [Recovered/Resolved]
